FAERS Safety Report 8189890-7 (Version None)
Quarter: 2012Q1

REPORT INFORMATION
  Report Type: 
  Country: None (occurrence: None)
  Receive Date: 20120307
  Receipt Date: 20120228
  Transmission Date: 20120608
  Serious: Yes (Hospitalization)
  Sender: FDA-Public Use
  Company Number: CZ-JNJFOC-20120214242

PATIENT
  Sex: Female

DRUGS (25)
  1. DOXORUBICIN HCL [Suspect]
     Indication: DIFFUSE LARGE B-CELL LYMPHOMA
     Route: 042
     Dates: start: 20110409
  2. PREDNISONE TAB [Suspect]
     Route: 048
     Dates: start: 20110401
  3. PARACETAMOLUM [Concomitant]
     Route: 065
     Dates: start: 20110401, end: 20110409
  4. CLIMARA [Concomitant]
     Route: 065
  5. RITUXIMAB [Suspect]
     Route: 042
     Dates: start: 20110401
  6. DITHIADEN [Concomitant]
     Route: 065
     Dates: start: 20110401, end: 20110409
  7. DURAGESIC-100 [Concomitant]
     Route: 065
  8. ALLOPURINOL [Concomitant]
     Route: 065
     Dates: start: 20110401, end: 20110418
  9. OMEPRAZOLE [Concomitant]
     Route: 065
     Dates: start: 20110401
  10. ENOXAPARIN SODIUM [Concomitant]
     Route: 065
     Dates: start: 20110314
  11. CITALOPRAM HYDROBROMIDE [Concomitant]
     Route: 065
     Dates: start: 20110401
  12. PREDNISONE TAB [Concomitant]
     Route: 065
     Dates: start: 20110406
  13. VINCRISTINE [Suspect]
     Route: 042
     Dates: start: 20110409
  14. DEGAN [Concomitant]
     Route: 065
     Dates: start: 20110401, end: 20110414
  15. NEULASTA [Suspect]
     Indication: DIFFUSE LARGE B-CELL LYMPHOMA
     Route: 058
     Dates: start: 20110410
  16. RITUXIMAB [Suspect]
     Indication: DIFFUSE LARGE B-CELL LYMPHOMA
     Route: 042
     Dates: start: 20110408, end: 20110409
  17. ALPRAZOLAM [Concomitant]
     Route: 065
     Dates: start: 20110401
  18. ONDANSETRON HCL [Concomitant]
     Route: 065
     Dates: start: 20110401, end: 20110412
  19. ACYCLOVIR [Concomitant]
     Route: 065
     Dates: start: 20110417
  20. CYCLOPHOSPHAMIDE [Suspect]
     Indication: DIFFUSE LARGE B-CELL LYMPHOMA
     Route: 042
     Dates: start: 20110408, end: 20110408
  21. VINCRISTINE [Suspect]
     Indication: DIFFUSE LARGE B-CELL LYMPHOMA
     Route: 042
     Dates: start: 20110401
  22. PREDNISONE TAB [Suspect]
     Indication: DIFFUSE LARGE B-CELL LYMPHOMA
     Route: 048
     Dates: start: 20110409, end: 20110413
  23. TRAMADOL HYDROCHLORIDE [Concomitant]
     Route: 065
     Dates: start: 20110331, end: 20110402
  24. MESNA [Concomitant]
     Route: 065
     Dates: start: 20110409
  25. HYDROCORTISONE [Concomitant]
     Route: 065
     Dates: start: 20110401, end: 20110409

REACTIONS (2)
  - HYDROPNEUMOTHORAX [None]
  - FEBRILE NEUTROPENIA [None]
